FAERS Safety Report 12661203 (Version 3)
Quarter: 2017Q1

REPORT INFORMATION
  Report Type: Spontaneous
  Country: US (occurrence: US)
  Receive Date: 20160817
  Receipt Date: 20170216
  Transmission Date: 20170428
  Serious: No
  Sender: FDA-Public Use
  Company Number: US-RELYPSA-RLY2016000664

PATIENT
  Age: 77 Year
  Sex: Male

DRUGS (20)
  1. ASPIRIN                            /00002701/ [Concomitant]
     Active Substance: ASPIRIN
  2. ONDANSETRON HCL [Concomitant]
     Active Substance: ONDANSETRON HYDROCHLORIDE
  3. NOVOLOG [Concomitant]
     Active Substance: INSULIN ASPART
     Dosage: AS NEEDED IN THE AM AND PM
  4. SIMVASTATIN. [Concomitant]
     Active Substance: SIMVASTATIN
  5. LANTUS [Concomitant]
     Active Substance: INSULIN GLARGINE
     Dosage: 8 U QAM, 3 U AT LUNCH, 6 U QPM
  6. FENTANYL. [Concomitant]
     Active Substance: FENTANYL
  7. HYDROCODONE BITARTRATE AND ACETAMINOPHEN [Concomitant]
     Active Substance: ACETAMINOPHEN\HYDROCODONE BITARTRATE
  8. MINERAL OIL. [Concomitant]
     Active Substance: MINERAL OIL
  9. MARINOL                            /00003301/ [Concomitant]
  10. METOPROLOL TARTRATE. [Concomitant]
     Active Substance: METOPROLOL TARTRATE
  11. VELTASSA [Suspect]
     Active Substance: PATIROMER
     Indication: HYPERKALAEMIA
     Dosage: 8.4 G, QD
     Route: 048
     Dates: start: 20160427, end: 20160507
  12. VITAMIN D                          /00107901/ [Concomitant]
     Active Substance: ERGOCALCIFEROL
  13. LEVOTHYROXINE SODIUM. [Concomitant]
     Active Substance: LEVOTHYROXINE SODIUM
  14. FUROSEMIDE. [Concomitant]
     Active Substance: FUROSEMIDE
  15. FINASTERIDE. [Concomitant]
     Active Substance: FINASTERIDE
  16. LACTULOSE. [Concomitant]
     Active Substance: LACTULOSE
  17. OMEPRAZOLE. [Concomitant]
     Active Substance: OMEPRAZOLE
  18. PANTOPRAZOLE SODIUM. [Concomitant]
     Active Substance: PANTOPRAZOLE SODIUM
  19. RELISTOR [Concomitant]
     Active Substance: METHYLNALTREXONE BROMIDE
  20. TAMSULOSIN HCL [Concomitant]
     Active Substance: TAMSULOSIN

REACTIONS (4)
  - Oxygen saturation decreased [Recovered/Resolved]
  - Impaired reasoning [Unknown]
  - Blood glucose fluctuation [Recovering/Resolving]
  - Dyspnoea [Recovered/Resolved]

NARRATIVE: CASE EVENT DATE: 201604
